FAERS Safety Report 4946245-3 (Version None)
Quarter: 2006Q1

REPORT INFORMATION
  Report Type: 
  Country: None (occurrence: None)
  Receive Date: 20060317
  Receipt Date: 20060308
  Transmission Date: 20060701
  Serious: Yes (Death, Hospitalization)
  Sender: FDA-Public Use
  Company Number: US-SANOFI-SYNTHELABO-A03200601286

PATIENT
  Sex: Male

DRUGS (9)
  1. PLAVIX [Suspect]
     Indication: CORONARY ARTERY DISEASE
     Route: 048
     Dates: start: 20050101
  2. TRICOR [Concomitant]
     Route: 048
  3. TOPROL-XL [Concomitant]
     Route: 048
  4. FIORINAL WC [Concomitant]
     Dosage: UNK
     Route: 048
  5. VALIUM [Concomitant]
     Route: 048
  6. ZOCOR [Concomitant]
     Route: 048
  7. WELCHOL [Concomitant]
     Route: 048
  8. ACIPHEX [Concomitant]
     Dosage: OTR
     Route: 048
  9. VIAGRA [Concomitant]
     Dosage: UNK
     Route: 048

REACTIONS (2)
  - CEREBROVASCULAR ACCIDENT [None]
  - PNEUMONIA ASPIRATION [None]
